FAERS Safety Report 9522351 (Version 2)
Quarter: 2013Q3

REPORT INFORMATION
  Report Type: Spontaneous
  Country: JP (occurrence: JP)
  Receive Date: 20130913
  Receipt Date: 20130913
  Transmission Date: 20140515
  Serious: Yes (Other)
  Sender: FDA-Public Use
  Company Number: JP-SUCAMPO PHARMA AMERICAS, INC-SPI201200331

PATIENT
  Age: 66 Year
  Sex: Female

DRUGS (7)
  1. AMITIZA [Suspect]
     Indication: CONSTIPATION
     Dosage: 48 MCG, BID
     Route: 048
     Dates: start: 20121127
  2. LOXONIN [Suspect]
     Indication: TUMOUR PAIN
     Dosage: 60 MG, TID
     Route: 048
     Dates: start: 20121116, end: 20121203
  3. SELBEX [Concomitant]
     Indication: GASTRITIS
     Dosage: 50 MG, TID
     Route: 048
  4. NORVASC [Concomitant]
     Indication: HYPERTENSION
     Dosage: 5 MG, BID
     Route: 048
  5. FOSRENOL [Concomitant]
     Indication: HYPERPHOSPHATAEMIA
     Dosage: 0.25 G, TID
     Route: 048
  6. MEVALOTIN [Concomitant]
     Indication: DYSLIPIDAEMIA
     Dosage: 10 MG, QD
     Route: 048
  7. DIOVAN [Concomitant]
     Indication: HYPERTENSION
     Dosage: 80 MG, QD
     Route: 048

REACTIONS (2)
  - Gastric ulcer haemorrhage [Recovered/Resolved]
  - Melaena [Recovered/Resolved]
